FAERS Safety Report 16810583 (Version 1)
Quarter: 2019Q3

REPORT INFORMATION
  Report Type: Spontaneous
  Country: US (occurrence: US)
  Receive Date: 20190916
  Receipt Date: 20190916
  Transmission Date: 20191005
  Serious: Yes (Death, Life-Threatening, Other)
  Sender: FDA-Public Use
  Company Number: US-PENTEC HEALTH-2019PEN00054

PATIENT
  Age: 4 Year
  Sex: Male
  Weight: 15.3 kg

DRUGS (6)
  1. PANTOPRAZOLE [Concomitant]
     Active Substance: PANTOPRAZOLE
     Dosage: 0.5 MG/KG, 1X/DAY
     Route: 042
  2. CEFTRIAXONE. [Concomitant]
     Active Substance: CEFTRIAXONE
     Dosage: 50 MG/KG, 1X/DAY
     Route: 065
  3. FENTANYL. [Concomitant]
     Active Substance: FENTANYL
     Dosage: 1 MG/KG, 1X/HOUR
     Route: 065
  4. PEDIATRIC TOTAL PARENTAL NUTRITION [Concomitant]
     Dosage: 45 ML, 1X/HOUR
     Route: 065
  5. PROPOFOL. [Suspect]
     Active Substance: PROPOFOL
     Dosage: 120 ?G/KG, 1X/HOUR
     Route: 065
  6. ROPIVACAINE HYDROCHLORIDE. [Suspect]
     Active Substance: ROPIVACAINE HYDROCHLORIDE
     Indication: PAIN PROPHYLAXIS
     Dosage: 6 MG PER HOUR (6.5 ?G/KG/MIN)
     Route: 058

REACTIONS (6)
  - Ventricular arrhythmia [Not Recovered/Not Resolved]
  - Tachycardia [Not Recovered/Not Resolved]
  - Drug interaction [Not Recovered/Not Resolved]
  - Ventricular fibrillation [Not Recovered/Not Resolved]
  - Cardiac arrest [Fatal]
  - Local anaesthetic systemic toxicity [Fatal]
